FAERS Safety Report 5726429-7 (Version None)
Quarter: 2008Q2

REPORT INFORMATION
  Report Type: 
  Country: None (occurrence: None)
  Receive Date: 20080502
  Receipt Date: 20080423
  Transmission Date: 20081010
  Serious: Yes (Other)
  Sender: FDA-Public Use
  Company Number: B0365636B

PATIENT
  Age: 62 Year
  Sex: Female
  Weight: 60 kg

DRUGS (2)
  1. GW572016 [Suspect]
     Dosage: 1500MG PER DAY
     Route: 048
     Dates: start: 20041112, end: 20050304
  2. LETROZOLE [Suspect]
     Dosage: 2.5MG PER DAY
     Route: 048
     Dates: start: 20041112, end: 20050304

REACTIONS (3)
  - COUGH [None]
  - DYSPNOEA [None]
  - INTERSTITIAL LUNG DISEASE [None]
